FAERS Safety Report 18027757 (Version 1)
Quarter: 2020Q3

REPORT INFORMATION
  Report Type: Spontaneous
  Country: DK (occurrence: DK)
  Receive Date: 20200715
  Receipt Date: 20200715
  Transmission Date: 20201103
  Serious: Yes (Other)
  Sender: FDA-Public Use
  Company Number: PHHY2018DK165397

PATIENT
  Age: 38 Year
  Sex: Female

DRUGS (7)
  1. CONCERTA [Concomitant]
     Active Substance: METHYLPHENIDATE HYDROCHLORIDE
     Indication: ATTENTION DEFICIT HYPERACTIVITY DISORDER
     Dosage: 54 MG, UNK
     Route: 065
     Dates: start: 20080929
  2. CIPRALEX [Suspect]
     Active Substance: ESCITALOPRAM OXALATE
     Indication: DEPRESSION
     Dosage: DOSIS: VARIERENDE
     Route: 048
     Dates: start: 200701
  3. RITALIN [Suspect]
     Active Substance: METHYLPHENIDATE HYDROCHLORIDE
     Indication: ATTENTION DEFICIT HYPERACTIVITY DISORDER
     Dosage: 120 MG, QD (DOSIS: VARIERENDE, OP TIL 120 MG DAGLIGT)
     Route: 048
     Dates: start: 2007, end: 201609
  4. RITALIN [Suspect]
     Active Substance: METHYLPHENIDATE HYDROCHLORIDE
     Indication: ATTENTION DEFICIT HYPERACTIVITY DISORDER
     Dosage: DOSIS: VARIERENDE.
     Route: 048
     Dates: start: 20070523, end: 201609
  5. ABILIFY [Suspect]
     Active Substance: ARIPIPRAZOLE
     Indication: PSYCHOTIC DISORDER
     Dosage: UNK
     Route: 048
     Dates: start: 20100111
  6. CYMBALTA [Suspect]
     Active Substance: DULOXETINE HYDROCHLORIDE
     Indication: DEPRESSION
     Dosage: UNK
     Route: 048
     Dates: start: 20071207
  7. ORAP [Suspect]
     Active Substance: PIMOZIDE
     Indication: PSYCHOTIC DISORDER
     Dosage: UNK
     Route: 048
     Dates: start: 20070829

REACTIONS (8)
  - Social problem [Unknown]
  - Sensory disturbance [Unknown]
  - Type 2 diabetes mellitus [Not Recovered/Not Resolved]
  - Weight increased [Unknown]
  - Sedation [Recovered/Resolved]
  - Behaviour disorder [Unknown]
  - Social avoidant behaviour [Unknown]
  - Prescribed overdose [Unknown]

NARRATIVE: CASE EVENT DATE: 20071128
